FAERS Safety Report 17509027 (Version 3)
Quarter: 2020Q2

REPORT INFORMATION
  Report Type: Spontaneous
  Country: US (occurrence: US)
  Receive Date: 20200306
  Receipt Date: 20200421
  Transmission Date: 20200713
  Serious: Yes (Hospitalization, Other)
  Sender: FDA-Public Use
  Company Number: US-GLAXOSMITHKLINE-US2020037850

PATIENT
  Age: 33 Year
  Sex: Female

DRUGS (1)
  1. BENLYSTA [Suspect]
     Active Substance: BELIMUMAB
     Indication: PRODUCT USED FOR UNKNOWN INDICATION
     Dosage: 200 MG, WE
     Route: 058
     Dates: start: 201904, end: 202003

REACTIONS (5)
  - Hepatic artery thrombosis [Unknown]
  - Pyrexia [Not Recovered/Not Resolved]
  - Malaise [Unknown]
  - Product dose omission [Not Recovered/Not Resolved]
  - Liver abscess [Unknown]

NARRATIVE: CASE EVENT DATE: 202002
